FAERS Safety Report 10132768 (Version 2)
Quarter: 2015Q1

REPORT INFORMATION
  Report Type: Other
  Country: US (occurrence: US)
  Receive Date: 20140428
  Receipt Date: 20150131
  Transmission Date: 20150720
  Serious: Yes (Hospitalization, Other)
  Sender: FDA-Public Use
  Company Number: US-GSKPPD-2014GSK032505

PATIENT
  Age: 54 Year
  Sex: Male

DRUGS (4)
  1. ADENOSINE. [Concomitant]
     Active Substance: ADENOSINE
     Dosage: TREATMENT MEDICATION
     Route: 042
     Dates: start: 20060809, end: 20060809
  2. AVANDIA [Suspect]
     Active Substance: ROSIGLITAZONE MALEATE
     Indication: DIABETES MELLITUS
     Dosage: AVANDIA WAS NOT LISTED AMONG THE PATIENTS RECORDS REVIEWED.
     Route: 048
  3. DILTIAZEM [Concomitant]
     Active Substance: DILTIAZEM
     Dosage: TREATMENT MEDICATION
     Route: 042
     Dates: start: 20060809, end: 20060809
  4. CARDIZEM CD [Concomitant]
     Active Substance: DILTIAZEM HYDROCHLORIDE
     Dosage: TREATMENT MEDICATION
     Route: 048
     Dates: start: 20060809

REACTIONS (2)
  - Myocardial infarction [Unknown]
  - Supraventricular tachycardia [Recovered/Resolved]

NARRATIVE: CASE EVENT DATE: 20060809
